FAERS Safety Report 13642059 (Version 4)
Quarter: 2017Q3

REPORT INFORMATION
  Report Type: Spontaneous
  Country: GR (occurrence: GR)
  Receive Date: 20170612
  Receipt Date: 20170928
  Transmission Date: 20171127
  Serious: Yes (Hospitalization, Other)
  Sender: FDA-Public Use
  Company Number: ALCN2017GR003823

PATIENT
  Age: 77 Year
  Sex: Male

DRUGS (3)
  1. TETRACAINE. [Concomitant]
     Active Substance: TETRACAINE
     Indication: PRODUCT USED FOR UNKNOWN INDICATION
     Route: 047
  2. BETADINE [Concomitant]
     Active Substance: POVIDONE-IODINE
     Indication: PRODUCT USED FOR UNKNOWN INDICATION
     Route: 047
  3. BSS [Suspect]
     Active Substance: CALCIUM CHLORIDE\MAGNESIUM CHLORIDE\POTASSIUM CHLORIDE\SODIUM ACETATE\SODIUM CHLORIDE\SODIUM CITRATE
     Indication: PRODUCT USED FOR UNKNOWN INDICATION
     Dosage: UNK
     Route: 031
     Dates: start: 20100623, end: 20100623

REACTIONS (7)
  - Visual impairment [Unknown]
  - Eye swelling [Unknown]
  - Endophthalmitis [Unknown]
  - Eye discharge [Unknown]
  - Hypopyon [Unknown]
  - Eye pain [Unknown]
  - Eye irritation [Unknown]
